FAERS Safety Report 7230717-5 (Version None)
Quarter: 2011Q1

REPORT INFORMATION
  Report Type: 
  Country: None (occurrence: None)
  Receive Date: 20110118
  Receipt Date: 20101231
  Transmission Date: 20110831
  Serious: Yes (Death)
  Sender: FDA-Public Use
  Company Number: GR-MPIJNJ-2010-06323

PATIENT

DRUGS (4)
  1. CYCLOPHOSPHAMIDE [Concomitant]
     Indication: MULTIPLE MYELOMA
  2. DOXORUBICINE [Concomitant]
     Indication: MULTIPLE MYELOMA
     Dosage: UNK
  3. VELCADE [Suspect]
     Indication: MULTIPLE MYELOMA
     Dosage: UNK
  4. DEXAMETHASONE [Concomitant]
     Indication: MULTIPLE MYELOMA

REACTIONS (2)
  - BONE MARROW FAILURE [None]
  - SEPTIC SHOCK [None]
